FAERS Safety Report 9557744 (Version 1)
Quarter: 2013Q3

REPORT INFORMATION
  Report Type: Spontaneous
  Country: IT (occurrence: IT)
  Receive Date: 20130926
  Receipt Date: 20130926
  Transmission Date: 20140515
  Serious: Yes (Other)
  Sender: FDA-Public Use
  Company Number: IT-TEVA-434087ISR

PATIENT
  Age: 90 Year
  Sex: Male

DRUGS (8)
  1. FUROSEMIDE [Suspect]
     Indication: HYPERTENSION
     Route: 048
     Dates: start: 20130101, end: 20130729
  2. ENANTONE 11.25 MG/2ML [Concomitant]
     Dosage: POWDER AND SOLVENT FOR PROLONGED-RELEASE INJECTABLE SUSPENSION
  3. DILATREND 6.25MG [Concomitant]
  4. DEPONIT 5MG/24HOURS [Concomitant]
  5. TRIATEC 2.5MG [Concomitant]
  6. FERRO-GRAD 105MG [Concomitant]
  7. PANTOPRAZOLO SODICO [Concomitant]
  8. ACIDO ACETILSALICILICO [Concomitant]

REACTIONS (2)
  - Renal failure acute [Not Recovered/Not Resolved]
  - Dehydration [Not Recovered/Not Resolved]
